FAERS Safety Report 7204274-3 (Version None)
Quarter: 2010Q4

REPORT INFORMATION
  Report Type: 
  Country: None (occurrence: None)
  Receive Date: 20101220
  Receipt Date: 20101206
  Transmission Date: 20110411
  Serious: Yes (Other)
  Sender: FDA-Public Use
  Company Number: 022841

PATIENT
  Sex: Female
  Weight: 60 kg

DRUGS (4)
  1. CIMZIA [Suspect]
     Indication: RHEUMATOID ARTHRITIS
     Dosage: (200 MG 1X/WEEK SUBCUTANEOUS)
     Route: 058
     Dates: start: 20100601, end: 20100101
  2. METHOTREXATE [Concomitant]
  3. FOLIC ACID [Concomitant]
  4. ALENDRONIC ACID [Concomitant]

REACTIONS (5)
  - ALOPECIA [None]
  - DYSPNOEA [None]
  - EPISTAXIS [None]
  - MYALGIA [None]
  - OFF LABEL USE [None]
